FAERS Safety Report 9745015 (Version 3)
Quarter: 2013Q4

REPORT INFORMATION
  Report Type: Report from Study
  Country: TR (occurrence: TR)
  Receive Date: 20131211
  Receipt Date: 20131231
  Transmission Date: 20140711
  Serious: Yes (Hospitalization, Disabling)
  Sender: FDA-Public Use
  Company Number: TR-ROCHE-1317284

PATIENT
  Age: 63 Year
  Sex: Female

DRUGS (2)
  1. XELODA [Suspect]
     Indication: HEPATIC CANCER
     Route: 048
     Dates: start: 20131007, end: 20131122
  2. XELODA [Suspect]
     Indication: GALLBLADDER CANCER

REACTIONS (2)
  - Embolism [Not Recovered/Not Resolved]
  - Hemiplegia [Not Recovered/Not Resolved]
